FAERS Safety Report 8788164 (Version 2)
Quarter: 2012Q4

REPORT INFORMATION
  Report Type: 
  Country: US (occurrence: US)
  Receive Date: 20120914
  Receipt Date: 20121008
  Transmission Date: 20130627
  Serious: Yes (Death)
  Sender: FDA-Public Use
  Company Number: US-ASTELLAS-2012US007763

PATIENT
  Sex: Male
  Weight: 57 kg

DRUGS (2)
  1. TARCEVA [Suspect]
     Indication: LUNG NEOPLASM MALIGNANT
     Dosage: 50 mg, UID/QD
     Route: 048
     Dates: start: 20120625, end: 20120731
  2. XGEVA [Concomitant]
     Indication: METASTASES TO BONE
     Dosage: 120 mg, Monthly
     Route: 058
     Dates: start: 20120703

REACTIONS (2)
  - Incorrect dose administered [Unknown]
  - Lung cancer metastatic [Fatal]
